FAERS Safety Report 12098339 (Version 3)
Quarter: 2016Q2

REPORT INFORMATION
  Report Type: Spontaneous
  Country: US (occurrence: US)
  Receive Date: 20160222
  Receipt Date: 20160411
  Transmission Date: 20160815
  Serious: No
  Sender: FDA-Public Use
  Company Number: US-009507513-1602USA008371

PATIENT
  Sex: Female

DRUGS (2)
  1. DECADRON [Suspect]
     Active Substance: DEXAMETHASONE
  2. DECADRON [Suspect]
     Active Substance: DEXAMETHASONE
     Route: 048

REACTIONS (1)
  - Burning sensation [Unknown]
